FAERS Safety Report 8518528 (Version 5)
Quarter: 2014Q1

REPORT INFORMATION
  Report Type: Spontaneous
  Country: US (occurrence: US)
  Receive Date: 20120417
  Receipt Date: 20140328
  Transmission Date: 20141002
  Serious: Yes (Other)
  Sender: FDA-Public Use
  Company Number: US-ASTRAZENECA-2011SE61697

PATIENT
  Age: 81 Year
  Sex: Female
  Weight: 54.9 kg

DRUGS (3)
  1. NEXIUM [Suspect]
     Indication: GASTROOESOPHAGEAL REFLUX DISEASE
     Route: 048
     Dates: start: 2009, end: 201401
  2. NEXIUM [Suspect]
     Indication: GASTROOESOPHAGEAL REFLUX DISEASE
     Route: 048
  3. LISINOPRIL [Suspect]
     Route: 048

REACTIONS (16)
  - Cardiac failure chronic [Unknown]
  - Myocardial infarction [Unknown]
  - Gastrooesophageal reflux disease [Unknown]
  - Burning sensation [Unknown]
  - Pharyngeal disorder [Unknown]
  - Dyspepsia [Unknown]
  - Dysphonia [Unknown]
  - Dysphonia [Unknown]
  - Weight decreased [Unknown]
  - Hypertension [Unknown]
  - Device failure [Unknown]
  - Malaise [Unknown]
  - Drug hypersensitivity [Unknown]
  - Intentional drug misuse [Unknown]
  - Off label use [Unknown]
  - Drug dose omission [Unknown]
